FAERS Safety Report 9325716 (Version 1)
Quarter: 2013Q2

REPORT INFORMATION
  Report Type: Spontaneous
  Country: ES (occurrence: ES)
  Receive Date: 20130604
  Receipt Date: 20130604
  Transmission Date: 20140414
  Serious: Yes (Other)
  Sender: FDA-Public Use
  Company Number: ES-UCBSA-087464

PATIENT
  Age: 77 Year
  Sex: Female

DRUGS (3)
  1. CIMZIA [Suspect]
     Indication: RHEUMATOID ARTHRITIS
     Dates: start: 201201, end: 2013
  2. METHOTREXATE [Concomitant]
     Indication: RHEUMATOID ARTHRITIS
  3. LEFLUNOMID [Concomitant]
     Indication: RHEUMATOID ARTHRITIS

REACTIONS (1)
  - Toxicity to various agents [Recovered/Resolved]
